FAERS Safety Report 14346622 (Version 20)
Quarter: 2020Q3

REPORT INFORMATION
  Report Type: Report from Study
  Country: US (occurrence: US)
  Receive Date: 20180103
  Receipt Date: 20200730
  Transmission Date: 20201102
  Serious: Yes (Hospitalization, Disabling, Other)
  Sender: FDA-Public Use
  Company Number: US-ACTELION-A-NJ2017-164921

PATIENT
  Age: 49 Year
  Sex: Female
  Weight: 63.49 kg

DRUGS (10)
  1. REMODULIN [Concomitant]
     Active Substance: TREPROSTINIL
     Dosage: 15 NG/KG, PER MIN
     Route: 065
  2. TYVASO [Concomitant]
     Active Substance: TREPROSTINIL
  3. OPSUMIT [Suspect]
     Active Substance: MACITENTAN
     Indication: PULMONARY HYPERTENSION
     Dosage: 10 MG, QD
     Route: 048
     Dates: start: 201710
  4. ELIQUIS [Concomitant]
     Active Substance: APIXABAN
  5. LETAIRIS [Concomitant]
     Active Substance: AMBRISENTAN
  6. OPSUMIT [Suspect]
     Active Substance: MACITENTAN
     Dosage: 10 MG, QD
     Route: 048
  7. REMODULIN [Concomitant]
     Active Substance: TREPROSTINIL
     Indication: PRODUCT USED FOR UNKNOWN INDICATION
     Dosage: UNK
     Route: 042
  8. ADCIRCA [Concomitant]
     Active Substance: TADALAFIL
  9. REMODULIN [Concomitant]
     Active Substance: TREPROSTINIL
     Dosage: 17 NG/KG, PER MIN
     Route: 065
  10. SILDENAFIL CITRATE. [Concomitant]
     Active Substance: SILDENAFIL CITRATE

REACTIONS (36)
  - Deep vein thrombosis [Recovering/Resolving]
  - Rash [Unknown]
  - Decreased appetite [Recovering/Resolving]
  - Nausea [Unknown]
  - Hospitalisation [Unknown]
  - Pericardial effusion [Recovering/Resolving]
  - Adverse event [Unknown]
  - Scleroderma [Recovering/Resolving]
  - Headache [Unknown]
  - Fluid retention [Unknown]
  - Vena cava filter insertion [Unknown]
  - Lung disorder [Unknown]
  - Pain [Unknown]
  - Dyspnoea [Recovering/Resolving]
  - Transfusion [Unknown]
  - Haemorrhage [Unknown]
  - Oedema [Recovered/Resolved]
  - Infusion site scab [Unknown]
  - Vomiting [Unknown]
  - Faeces discoloured [Unknown]
  - Haemoglobin decreased [Unknown]
  - Malaise [Unknown]
  - Condition aggravated [Recovering/Resolving]
  - Pulmonary hypertension [Unknown]
  - Chest discomfort [Unknown]
  - Aspiration pleural cavity [Unknown]
  - Renal failure [Recovered/Resolved]
  - Pulmonary oedema [Recovering/Resolving]
  - Bedridden [Recovering/Resolving]
  - Diarrhoea [Unknown]
  - Pulmonary arterial hypertension [Recovering/Resolving]
  - Infusion site pruritus [Unknown]
  - Infusion site irritation [Unknown]
  - Physical deconditioning [Recovering/Resolving]
  - Clostridium difficile colitis [Unknown]
  - Polyp [Unknown]

NARRATIVE: CASE EVENT DATE: 2017
